FAERS Safety Report 5996132-7 (Version None)
Quarter: 2008Q4

REPORT INFORMATION
  Report Type: 
  Country: None (occurrence: None)
  Receive Date: 20081212
  Receipt Date: 20081008
  Transmission Date: 20090506
  Serious: No
  Sender: FDA-Public Use
  Company Number: US-ABBOTT-08P-163-0480830-00

PATIENT
  Sex: Female
  Weight: 80.358 kg

DRUGS (5)
  1. HUMIRA [Suspect]
     Indication: CROHN'S DISEASE
     Route: 058
     Dates: start: 20070401, end: 20081002
  2. ENDOCORT [Concomitant]
     Indication: CROHN'S DISEASE
  3. LIALDA [Concomitant]
     Indication: CROHN'S DISEASE
  4. MESALAMINE [Concomitant]
     Indication: GASTROINTESTINAL MOTILITY DISORDER
  5. CALCIUM CARBONATE [Concomitant]
     Indication: CROHN'S DISEASE

REACTIONS (2)
  - CONJUNCTIVITIS [None]
  - SINUSITIS [None]
